FAERS Safety Report 6215044-7 (Version None)
Quarter: 2009Q2

REPORT INFORMATION
  Report Type: 
  Country: None (occurrence: None)
  Receive Date: 20090604
  Receipt Date: 20081208
  Transmission Date: 20091009
  Serious: No
  Sender: FDA-Public Use
  Company Number: US-ASTRAZENECA-2008UW27280

PATIENT
  Age: 6 Year
  Sex: Female
  Weight: 18.6 kg

DRUGS (4)
  1. PRILOSEC [Suspect]
     Indication: CROHN'S DISEASE
     Route: 048
     Dates: start: 20081205
  2. PRILOSEC [Suspect]
     Indication: GASTRITIS
     Route: 048
     Dates: start: 20081205
  3. PRILOSEC [Suspect]
     Indication: COLITIS
     Route: 048
     Dates: start: 20081205
  4. CLARITIN [Concomitant]

REACTIONS (3)
  - CHEST PAIN [None]
  - HOT FLUSH [None]
  - PALPITATIONS [None]
